FAERS Safety Report 4369097-1 (Version None)
Quarter: 2004Q2

REPORT INFORMATION
  Report Type: 
  Country: None (occurrence: None)
  Receive Date: 20040527
  Receipt Date: 20040512
  Transmission Date: 20050107
  Serious: Yes (Death, Hospitalization)
  Sender: FDA-Public Use
  Company Number: A03200401344

PATIENT
  Age: 72 Year
  Sex: Male
  Weight: 92.5338 kg

DRUGS (12)
  1. ELOXATIN [Suspect]
     Indication: COLORECTAL CANCER
     Dosage: 180 MG OTHER INTRAVENOUS NOS
     Route: 042
     Dates: start: 20040420, end: 20040420
  2. ELOXATIN [Suspect]
     Indication: METASTASES TO LIVER
     Dosage: 180 MG OTHER INTRAVENOUS NOS
     Route: 042
     Dates: start: 20040420, end: 20040420
  3. ELOXATIN [Suspect]
     Indication: METASTASES TO LUNG
     Dosage: 180 MG OTHER INTRAVENOUS NOS
     Route: 042
     Dates: start: 20040420, end: 20040420
  4. AVASTIN [Suspect]
     Indication: COLORECTAL CANCER
     Dosage: INTRAVENOUS NOS
     Route: 042
     Dates: start: 20040420, end: 20040420
  5. AVASTIN [Suspect]
     Indication: METASTASES TO LIVER
     Dosage: INTRAVENOUS NOS
     Route: 042
     Dates: start: 20040420, end: 20040420
  6. AVASTIN [Suspect]
     Indication: METASTASES TO LUNG
     Dosage: INTRAVENOUS NOS
     Route: 042
     Dates: start: 20040420, end: 20040420
  7. FLUOROURACIL [Concomitant]
  8. LEUCOVORIN [Concomitant]
  9. DOLASETRON MESILATE [Concomitant]
  10. DEXAMETHASONE [Concomitant]
  11. WARFARIN SODIUM [Concomitant]
  12. PROCHLORPERAZINE EDISYLATE [Concomitant]

REACTIONS (1)
  - RENAL FAILURE ACUTE [None]
